FAERS Safety Report 18748434 (Version 2)
Quarter: 2021Q1

REPORT INFORMATION
  Report Type: Report from Study
  Country: ES (occurrence: ES)
  Receive Date: 20210115
  Receipt Date: 20210129
  Transmission Date: 20210419
  Serious: Yes (Hospitalization, Other)
  Sender: FDA-Public Use
  Company Number: ES-TAIHO ONCOLOGY  INC-IM-2021-00003

PATIENT
  Age: 58 Year
  Sex: Male
  Weight: 116.4 kg

DRUGS (8)
  1. MST [Concomitant]
     Dosage: 40 MG, BID
     Route: 048
     Dates: start: 20201210, end: 20201222
  2. BEVACIZUMAB. [Suspect]
     Active Substance: BEVACIZUMAB
     Dosage: 548.5 MG (5 MG/KG), ON DAYS 1 AND 15 OF EACH 28?DAY CYCLE
     Route: 042
     Dates: start: 20210114, end: 20210114
  3. NOLOTIL [Concomitant]
     Indication: PAIN
     Dosage: 1 DF, TID
     Route: 048
     Dates: start: 20201126
  4. BEVACIZUMAB. [Suspect]
     Active Substance: BEVACIZUMAB
     Indication: COLORECTAL ADENOCARCINOMA
     Dosage: 582.0 MG (5 MG/KG), ON DAYS 1 AND 15 OF EACH 28?DAY CYCLE
     Route: 042
     Dates: start: 20201210, end: 20201210
  5. LONSURF [Suspect]
     Active Substance: TIPIRACIL HYDROCHLORIDE\TRIFLURIDINE
     Indication: COLORECTAL ADENOCARCINOMA
     Dosage: 80 MG (35MG/M2), BID, ON DAYS 1?5 AND 8?12 OF EACH 28?DAY CYCLE
     Route: 048
     Dates: start: 20201210, end: 20201221
  6. LONSURF [Suspect]
     Active Substance: TIPIRACIL HYDROCHLORIDE\TRIFLURIDINE
     Dosage: 70 MG (30 MG/M2), BID, ON DAYS 1?5 AND 8?12 OF EACH 28?DAY CYCLE
     Route: 048
     Dates: start: 20210114
  7. MST [Concomitant]
     Indication: PAIN
     Dosage: 20 MG, BID
     Route: 048
     Dates: start: 20201203, end: 20201209
  8. ENALAPRIL [Concomitant]
     Active Substance: ENALAPRIL
     Indication: HYPERTENSION
     Dosage: 1 DF, QD
     Route: 062
     Dates: end: 20201227

REACTIONS (7)
  - Vomiting [Recovered/Resolved]
  - Dehydration [Recovered/Resolved]
  - Dysuria [Recovered/Resolved]
  - Hypotension [Recovered/Resolved]
  - Bacteriuria [Recovered/Resolved]
  - Acute kidney injury [Recovered/Resolved]
  - Nausea [Recovered/Resolved]

NARRATIVE: CASE EVENT DATE: 20201223
